FAERS Safety Report 5322111-9 (Version None)
Quarter: 2007Q2

REPORT INFORMATION
  Report Type: 
  Country: None (occurrence: None)
  Receive Date: 20070222
  Receipt Date: 20060524
  Transmission Date: 20071010
  Serious: Yes (Hospitalization, Other)
  Sender: FDA-Public Use
  Company Number: HQWYE544725MA06

PATIENT
  Sex: Female

DRUGS (1)
  1. EFFEXOR [Suspect]
     Dates: end: 20060501

REACTIONS (2)
  - MANIA [None]
  - SUICIDAL IDEATION [None]
